FAERS Safety Report 6278592-X (Version None)
Quarter: 2009Q3

REPORT INFORMATION
  Report Type: 
  Country: None (occurrence: None)
  Receive Date: 20090722
  Receipt Date: 20090106
  Transmission Date: 20100115
  Serious: No
  Sender: FDA-Public Use
  Company Number: US-BAUSCH-2009BL000075

PATIENT
  Age: 20 None
  Sex: Male

DRUGS (2)
  1. OPCON-A [Suspect]
     Indication: EYE PRURITUS
     Route: 047
     Dates: start: 20090106, end: 20090106
  2. OPCON-A [Suspect]
     Indication: OCULAR HYPERAEMIA
     Route: 047
     Dates: start: 20090106, end: 20090106

REACTIONS (3)
  - ASTHENOPIA [None]
  - HEADACHE [None]
  - MYDRIASIS [None]
